FAERS Safety Report 26086765 (Version 1)
Quarter: 2025Q4

REPORT INFORMATION
  Report Type: Spontaneous
  Country: US (occurrence: None)
  Receive Date: 20251124
  Receipt Date: 20251124
  Transmission Date: 20260117
  Serious: Yes (Hospitalization)
  Sender: FDA-CTU
  Company Number: None

PATIENT
  Age: 23 Year
  Sex: Male
  Weight: 81.6 kg

DRUGS (13)
  1. CEFTRIAXONE SODIUM [Suspect]
     Active Substance: CEFTRIAXONE SODIUM
     Indication: Cellulitis
     Dosage: OTHER FREQUENCY : ONCE;?
     Route: 042
     Dates: start: 20251123, end: 20251123
  2. ALPRAZOLAM [Concomitant]
     Active Substance: ALPRAZOLAM
  3. CELECOXIB [Concomitant]
     Active Substance: CELECOXIB
  4. DULOXETINE [Concomitant]
     Active Substance: DULOXETINE
  5. GABAPENTIN [Concomitant]
     Active Substance: GABAPENTIN
  6. NORCO [Concomitant]
     Active Substance: ACETAMINOPHEN\HYDROCODONE BITARTRATE
  7. JOURNAVX [Concomitant]
     Active Substance: SUZETRIGINE
  8. METHOCARBAMOL [Concomitant]
     Active Substance: METHOCARBAMOL
  9. MUPIROCIN [Concomitant]
     Active Substance: MUPIROCIN
  10. NALOXONE [Concomitant]
     Active Substance: NALOXONE
  11. ONDANSETRON [Concomitant]
     Active Substance: ONDANSETRON
  12. TESTOSTERONE CYPIONATE [Concomitant]
     Active Substance: TESTOSTERONE CYPIONATE
  13. TRAMADOL [Concomitant]
     Active Substance: TRAMADOL

REACTIONS (2)
  - Anaphylactic reaction [None]
  - Vision blurred [None]

NARRATIVE: CASE EVENT DATE: 20251123
